FAERS Safety Report 14634463 (Version 1)
Quarter: 2018Q1

REPORT INFORMATION
  Report Type: Spontaneous
  Country: PT (occurrence: PT)
  Receive Date: 20180314
  Receipt Date: 20180314
  Transmission Date: 20180509
  Serious: Yes (Death, Other)
  Sender: FDA-Public Use
  Company Number: PHHY2018PT041393

PATIENT
  Age: 60 Year
  Sex: Male

DRUGS (3)
  1. OXALIPLATIN. [Suspect]
     Active Substance: OXALIPLATIN
     Indication: ADENOCARCINOMA PANCREAS
     Route: 065
  2. 5-FU [Suspect]
     Active Substance: FLUOROURACIL
     Indication: ADENOCARCINOMA PANCREAS
     Route: 065
  3. FOLINIC ACID [Suspect]
     Active Substance: LEUCOVORIN
     Indication: METASTATIC NEOPLASM
     Route: 065

REACTIONS (8)
  - Large intestine perforation [Unknown]
  - Abdominal pain lower [Unknown]
  - Confusional state [Unknown]
  - Malignant neoplasm progression [Fatal]
  - Metastatic neoplasm [Fatal]
  - Peritonitis [Unknown]
  - Pyrexia [Unknown]
  - Agitation [Unknown]
